FAERS Safety Report 5798370-5 (Version None)
Quarter: 2008Q3

REPORT INFORMATION
  Report Type: 
  Country: None (occurrence: None)
  Receive Date: 20080702
  Receipt Date: 20071113
  Transmission Date: 20090109
  Serious: No
  Sender: FDA-Public Use
  Company Number: A0694207A

PATIENT
  Age: 75 Year
  Sex: Female

DRUGS (3)
  1. PARNATE [Suspect]
     Indication: DRUG USE FOR UNKNOWN INDICATION
     Dosage: 10MG THREE TIMES PER DAY
     Route: 048
  2. BLOOD PRESSURE MED [Concomitant]
  3. CHOLESTEROL REDUCING AGENT [Concomitant]

REACTIONS (1)
  - NERVOUSNESS [None]
